FAERS Safety Report 5746482-4 (Version None)
Quarter: 2008Q2

REPORT INFORMATION
  Report Type: 
  Country: None (occurrence: None)
  Receive Date: 20080522
  Receipt Date: 20080519
  Transmission Date: 20081010
  Serious: Yes (Hospitalization)
  Sender: FDA-Public Use
  Company Number: B0521536A

PATIENT
  Age: 52 Year
  Sex: Female

DRUGS (2)
  1. TYVERB [Suspect]
     Indication: BREAST CANCER
     Dosage: 1250MG PER DAY
     Route: 048
     Dates: start: 20080401
  2. XELODA [Concomitant]
     Indication: BREAST CANCER
     Route: 048

REACTIONS (3)
  - ASTHENIA [None]
  - DIARRHOEA [None]
  - NAUSEA [None]
